FAERS Safety Report 7936729-8 (Version None)
Quarter: 2011Q4

REPORT INFORMATION
  Report Type: 
  Country: None (occurrence: None)
  Receive Date: 20111123
  Receipt Date: 20111114
  Transmission Date: 20120403
  Serious: Yes (Other)
  Sender: FDA-Public Use
  Company Number: SK-CELGENEUS-260-21880-11111879

PATIENT
  Sex: Male

DRUGS (1)
  1. REVLIMID [Suspect]
     Dosage: 10 MILLIGRAM
     Route: 048
     Dates: start: 20111101

REACTIONS (3)
  - FEBRILE INFECTION [None]
  - NEUTROPENIA [None]
  - COLON CANCER [None]
